FAERS Safety Report 17445896 (Version 1)
Quarter: 2020Q1

REPORT INFORMATION
  Report Type: Spontaneous
  Country: US (occurrence: US)
  Receive Date: 20200221
  Receipt Date: 20200221
  Transmission Date: 20200409
  Serious: No
  Sender: FDA-Public Use
  Company Number: US-RECORDATI RARE DISEASES-US-R13005-19-00180

PATIENT
  Sex: Male

DRUGS (1)
  1. DESOXYN [Suspect]
     Active Substance: METHAMPHETAMINE HYDROCHLORIDE
     Indication: ATTENTION DEFICIT/HYPERACTIVITY DISORDER
     Route: 065

REACTIONS (8)
  - Off label use [Unknown]
  - Product availability issue [Unknown]
  - Feeling abnormal [Unknown]
  - Dyspnoea [Unknown]
  - Insomnia [Unknown]
  - Impaired work ability [Unknown]
  - Depression [Unknown]
  - Malaise [Unknown]
